FAERS Safety Report 14931557 (Version 1)
Quarter: 2018Q2

REPORT INFORMATION
  Report Type: Spontaneous
  Country: US (occurrence: US)
  Receive Date: 20180524
  Receipt Date: 20180524
  Transmission Date: 20180711
  Serious: No
  Sender: FDA-Public Use
  Company Number: US-BIOGEN-2015BI155065

PATIENT
  Sex: Male

DRUGS (2)
  1. TECFIDERA [Suspect]
     Active Substance: DIMETHYL FUMARATE
     Route: 048
     Dates: start: 20151016
  2. TECFIDERA [Suspect]
     Active Substance: DIMETHYL FUMARATE
     Indication: MULTIPLE SCLEROSIS
     Dosage: MAINTENANCE DOSE
     Route: 048
     Dates: start: 20151015, end: 20151123

REACTIONS (8)
  - Syncope [Unknown]
  - Fall [Recovered/Resolved]
  - Multiple sclerosis [Not Recovered/Not Resolved]
  - Dizziness [Not Recovered/Not Resolved]
  - Mental impairment [Not Recovered/Not Resolved]
  - Flushing [Not Recovered/Not Resolved]
  - Loss of consciousness [Not Recovered/Not Resolved]
  - Visual impairment [Not Recovered/Not Resolved]
